FAERS Safety Report 14667164 (Version 1)
Quarter: 2018Q1

REPORT INFORMATION
  Report Type: Spontaneous
  Country: FR (occurrence: FR)
  Receive Date: 20180322
  Receipt Date: 20180322
  Transmission Date: 20180509
  Serious: Yes (Other)
  Sender: FDA-Public Use
  Company Number: FR-MERCK KGAA-2044280

PATIENT
  Sex: Female

DRUGS (1)
  1. NOVOTHYROX [Suspect]
     Active Substance: LEVOTHYROXINE SODIUM
     Indication: PRODUCT USED FOR UNKNOWN INDICATION

REACTIONS (18)
  - Dyspnoea [None]
  - Feeling of body temperature change [None]
  - Musculoskeletal discomfort [None]
  - Ocular discomfort [None]
  - Tinnitus [None]
  - Insomnia [None]
  - Social avoidant behaviour [None]
  - Nausea [None]
  - Mental fatigue [None]
  - Alopecia [None]
  - Tremor [None]
  - Eyelid function disorder [None]
  - Headache [None]
  - Heart rate increased [None]
  - Fatigue [None]
  - Loss of personal independence in daily activities [None]
  - Weight decreased [None]
  - Nervousness [None]
